FAERS Safety Report 7733908-X (Version None)
Quarter: 2011Q3

REPORT INFORMATION
  Report Type: 
  Country: None (occurrence: None)
  Receive Date: 20110907
  Receipt Date: 20110829
  Transmission Date: 20111222
  Serious: Yes (Hospitalization)
  Sender: FDA-Public Use
  Company Number: US-B.I. PHARMACEUTICALS,INC./RIDGEFIELD-2011-BP-20242BP

PATIENT
  Sex: Female
  Weight: 83.9 kg

DRUGS (10)
  1. LISINOPRIL [Concomitant]
     Dosage: 10 MG
  2. INSULIN [Concomitant]
  3. FEMARA [Concomitant]
  4. TYLENOL-500 [Concomitant]
  5. MIRAPEX [Suspect]
     Dosage: 2 MG
     Dates: start: 20061101, end: 20110306
  6. NIFEREX [Concomitant]
  7. CALCIUM CARBONATE [Concomitant]
  8. MIRAPEX [Suspect]
     Indication: RESTLESS LEGS SYNDROME
     Dosage: 1 MG
     Dates: start: 20050101, end: 20061101
  9. PRILOSEC [Concomitant]
  10. ATENOLOL [Concomitant]
     Dosage: 50 MG

REACTIONS (16)
  - PATHOLOGICAL GAMBLING [None]
  - DEPRESSION [None]
  - NAUSEA [None]
  - FALL [None]
  - FATIGUE [None]
  - EMOTIONAL DISTRESS [None]
  - STRESS [None]
  - HAEMORRHAGE INTRACRANIAL [None]
  - SYNCOPE [None]
  - ABDOMINAL PAIN UPPER [None]
  - ORTHOSTATIC HYPOTENSION [None]
  - COMPULSIVE SHOPPING [None]
  - VISION BLURRED [None]
  - FIBULA FRACTURE [None]
  - FEELING ABNORMAL [None]
  - IMPULSE-CONTROL DISORDER [None]
